FAERS Safety Report 11494439 (Version 2)
Quarter: 2015Q3

REPORT INFORMATION
  Report Type: Spontaneous
  Country: DE (occurrence: DE)
  Receive Date: 20150911
  Receipt Date: 20150914
  Transmission Date: 20151125
  Serious: Yes (Hospitalization, Other)
  Sender: FDA-Public Use
  Company Number: PHHY2015DE108620

PATIENT
  Age: 80 Year
  Sex: Female

DRUGS (3)
  1. ZOLEDRONIC ACID [Suspect]
     Active Substance: ZOLEDRONIC ACID
     Indication: PLASMA CELL MYELOMA
     Dosage: 4 MG, EVERY 4 WEEKS
     Route: 065
  2. PREDNISOLONE. [Suspect]
     Active Substance: PREDNISOLONE
     Indication: PLASMA CELL MYELOMA
     Dosage: 100 MG, (DAY 1 AND 4)
     Route: 065
     Dates: start: 201209, end: 201302
  3. BENDAMUSTINE [Suspect]
     Active Substance: BENDAMUSTINE
     Indication: PLASMA CELL MYELOMA
     Dosage: 120 MG/M2 (DAY 1 AND 2)
     Route: 065
     Dates: start: 201209, end: 201302

REACTIONS (11)
  - Recurrent cancer [Unknown]
  - Escherichia sepsis [Unknown]
  - Renal failure [Unknown]
  - Plasma cell myeloma [Unknown]
  - Fatigue [Unknown]
  - Osteolysis [Unknown]
  - Blood count abnormal [Unknown]
  - Leukopenia [Unknown]
  - Pain [Unknown]
  - Concomitant disease progression [Unknown]
  - Thrombocytopenia [Unknown]

NARRATIVE: CASE EVENT DATE: 201312
